FAERS Safety Report 24595212 (Version 3)
Quarter: 2024Q4

REPORT INFORMATION
  Report Type: Spontaneous
  Country: US (occurrence: US)
  Receive Date: 20241108
  Receipt Date: 20241127
  Transmission Date: 20250115
  Serious: Yes (Hospitalization)
  Sender: RIGEL PHARMACEUTICALS
  Company Number: US-RIGEL Pharmaceuticals INC-20241000179

PATIENT
  Sex: Female

DRUGS (1)
  1. TAVALISSE [Suspect]
     Active Substance: FOSTAMATINIB
     Indication: Lung neoplasm malignant
     Dosage: 100 MG, BID
     Route: 048
     Dates: start: 20241008

REACTIONS (8)
  - Platelet count decreased [Unknown]
  - Dyspnoea exertional [Unknown]
  - Platelet count increased [Recovering/Resolving]
  - Neutrophil count increased [Unknown]
  - White blood cell count decreased [Unknown]
  - Product dose omission issue [Unknown]
  - Off label use [Unknown]
  - Fatigue [Unknown]

NARRATIVE: CASE EVENT DATE: 20240101
